FAERS Safety Report 7952443-7 (Version None)
Quarter: 2011Q4

REPORT INFORMATION
  Report Type: 
  Country: None (occurrence: None)
  Receive Date: 20111201
  Receipt Date: 20111125
  Transmission Date: 20120403
  Serious: Yes (Other)
  Sender: FDA-Public Use
  Company Number: JP-GLAXOSMITHKLINE-B0765858A

PATIENT

DRUGS (1)
  1. FLUTICASONE PROPIONATE [Suspect]
     Indication: PNEUMONIA MYCOPLASMAL
     Route: 055

REACTIONS (2)
  - CONDITION AGGRAVATED [None]
  - PNEUMONIA MYCOPLASMAL [None]
